FAERS Safety Report 16421132 (Version 1)
Quarter: 2019Q3

REPORT INFORMATION
  Report Type: Spontaneous
  Country: US (occurrence: US)
  Receive Date: 20190611
  Receipt Date: 20190611
  Transmission Date: 20191004
  Serious: No
  Sender: FDA-Public Use
  Company Number: None

PATIENT
  Age: 73 Year
  Sex: Male

DRUGS (15)
  1. COUMADIN [Concomitant]
     Active Substance: WARFARIN SODIUM
  2. EFFEXOR XR [Concomitant]
     Active Substance: VENLAFAXINE HYDROCHLORIDE
  3. COLCRYS [Concomitant]
     Active Substance: COLCHICINE
  4. SPIRONOLACTONE. [Concomitant]
     Active Substance: SPIRONOLACTONE
  5. RAYALDEE [Suspect]
     Active Substance: CALCIFEDIOL
     Indication: HYPERPARATHYROIDISM SECONDARY
     Route: 048
     Dates: start: 20190320, end: 20190601
  6. NEURONTIN [Concomitant]
     Active Substance: GABAPENTIN
  7. TRAMADOL. [Concomitant]
     Active Substance: TRAMADOL
  8. ALLOPURINOL. [Concomitant]
     Active Substance: ALLOPURINOL
  9. LEVOTHYROXINE. [Concomitant]
     Active Substance: LEVOTHYROXINE
  10. TIZANIDINE. [Concomitant]
     Active Substance: TIZANIDINE
  11. LOPID [Concomitant]
     Active Substance: GEMFIBROZIL
  12. ATORVASTATIN [Concomitant]
     Active Substance: ATORVASTATIN
  13. LASIX [Concomitant]
     Active Substance: FUROSEMIDE
  14. FOLIC ACID. [Concomitant]
     Active Substance: FOLIC ACID
  15. TAMSULOSIN [Concomitant]
     Active Substance: TAMSULOSIN

REACTIONS (3)
  - Haemoglobin decreased [None]
  - Contusion [None]
  - Hypotension [None]

NARRATIVE: CASE EVENT DATE: 20190611
